FAERS Safety Report 16533969 (Version 2)
Quarter: 2019Q3

REPORT INFORMATION
  Report Type: Spontaneous
  Country: NL (occurrence: NL)
  Receive Date: 20190705
  Receipt Date: 20190705
  Transmission Date: 20191004
  Serious: Yes (Death)
  Sender: FDA-Public Use
  Company Number: NL-TEVA-2019-NL-1071021

PATIENT
  Age: 66 Year
  Sex: Female

DRUGS (8)
  1. LETROZOL OMHULDE TABLET, 2.5 MG (MILLIGRAM) [Suspect]
     Active Substance: LETROZOLE
     Indication: BREAST CANCER
     Dosage: 1X PER DAY 1 PIECE
     Dates: start: 20190308
  2. METOPROLOL 1DD 150MG [Concomitant]
     Dosage: 1DD 150MG
  3. NOVORAPID [Concomitant]
     Active Substance: INSULIN ASPART
  4. IPRATROPIUM [Concomitant]
     Active Substance: IPRATROPIUM
     Dosage: 1DD 40MCG
  5. PULMICORT TURBUHALER [Concomitant]
     Active Substance: BUDESONIDE
     Dosage: 1DD 400MCG
  6. PERINDOPRIL/INDAPAMIDE [Concomitant]
     Active Substance: INDAPAMIDE\PERINDOPRIL
     Dosage: 1DD 4/2.25MG
  7. CLOVATE CREME [Concomitant]
  8. ESOMEPRAZOL [Concomitant]
     Active Substance: ESOMEPRAZOLE
     Dosage: 1 DD 40 MG

REACTIONS (1)
  - Myocardial infarction [Fatal]

NARRATIVE: CASE EVENT DATE: 20190420
